FAERS Safety Report 4649182-7 (Version None)
Quarter: 2005Q2

REPORT INFORMATION
  Report Type: 
  Country: None (occurrence: None)
  Receive Date: 20050331
  Receipt Date: 20041216
  Transmission Date: 20051028
  Serious: No
  Sender: FDA-Public Use
  Company Number: 04P-163-0283595-00

PATIENT
  Age: 67 Year
  Sex: Male
  Weight: 87.5442 kg

DRUGS (7)
  1. HUMIRA [Suspect]
     Indication: RHEUMATOID ARTHRITIS
     Dosage: 40 MG, 1 IN 2 WK, SUBCUTANEOUS
     Route: 058
     Dates: start: 20030101, end: 20041209
  2. METHOTREXATE [Concomitant]
  3. LEFLUNOMIDE [Concomitant]
  4. PREDNISONE TAB [Concomitant]
  5. HYDROXYCHLOROQUINE PHOSPHATE [Concomitant]
  6. FOLINIC ACID [Concomitant]
  7. HYZAAR [Concomitant]

REACTIONS (1)
  - DYSPNOEA [None]
